FAERS Safety Report 13896211 (Version 1)
Quarter: 2017Q3

REPORT INFORMATION
  Report Type: Spontaneous
  Country: US (occurrence: None)
  Receive Date: 20170816
  Receipt Date: 20170816
  Transmission Date: 20171127
  Serious: Yes (Other)
  Sender: FDA-Public Use
  Company Number: None

PATIENT
  Age: 66 Year
  Sex: Female
  Weight: 52.16 kg

DRUGS (16)
  1. GLOUCOSAMIN/CHONDROITIN [Concomitant]
  2. FLAXSEED [Concomitant]
     Active Substance: FLAX SEED
  3. MAGNESIUM [Concomitant]
     Active Substance: MAGNESIUM
  4. CALAN SR [Suspect]
     Active Substance: VERAPAMIL HYDROCHLORIDE
     Indication: MITRAL VALVE PROLAPSE
     Dosage: ?          QUANTITY:1 ;?
     Route: 048
     Dates: start: 20170715, end: 20170730
  5. CALAN SR [Suspect]
     Active Substance: VERAPAMIL HYDROCHLORIDE
     Indication: DYSPNOEA
     Dosage: ?          QUANTITY:1 ;?
     Route: 048
     Dates: start: 20170715, end: 20170730
  6. CALAN SR [Suspect]
     Active Substance: VERAPAMIL HYDROCHLORIDE
     Indication: PALPITATIONS
     Dosage: ?          QUANTITY:1 ;?
     Route: 048
     Dates: start: 20170715, end: 20170730
  7. ISOPTIN SR [Suspect]
     Active Substance: VERAPAMIL HYDROCHLORIDE
  8. VITAMIN B12 [Concomitant]
     Active Substance: CYANOCOBALAMIN
  9. BIOTIN [Concomitant]
     Active Substance: BIOTIN
  10. OMEGA 3 [Concomitant]
     Active Substance: OMEGA-3 FATTY ACIDS
  11. PROBIOTIC GUMMIES [Concomitant]
  12. VERAPAMIL HCL [Suspect]
     Active Substance: VERAPAMIL HYDROCHLORIDE
  13. CALCIUM CITRATE + D3 [Concomitant]
  14. FIBER GUMMIES [Concomitant]
  15. CALAN SR [Suspect]
     Active Substance: VERAPAMIL HYDROCHLORIDE
     Indication: CHEST PAIN
     Dosage: ?          QUANTITY:1 ;?
     Route: 048
     Dates: start: 20170715, end: 20170730
  16. EYE HEALTH VITAMIN [Concomitant]

REACTIONS (5)
  - Dizziness postural [None]
  - Product substitution issue [None]
  - Abdominal pain upper [None]
  - Dyspepsia [None]
  - Malaise [None]

NARRATIVE: CASE EVENT DATE: 20170715
